FAERS Safety Report 13807432 (Version 2)
Quarter: 2017Q3

REPORT INFORMATION
  Report Type: Spontaneous
  Country: US (occurrence: US)
  Receive Date: 20170728
  Receipt Date: 20170914
  Transmission Date: 20171127
  Serious: Yes (Hospitalization)
  Sender: FDA-Public Use
  Company Number: US-VIFOR (INTERNATIONAL) INC.-VIT-2017-07975

PATIENT
  Sex: Male

DRUGS (7)
  1. COLECALCIFEROL [Concomitant]
     Active Substance: CHOLECALCIFEROL
  2. LISINOPRIL. [Concomitant]
     Active Substance: LISINOPRIL
  3. LIPITOR [Concomitant]
     Active Substance: ATORVASTATIN CALCIUM
  4. VELTASSA [Suspect]
     Active Substance: PATIROMER
     Indication: HYPERKALAEMIA
     Route: 048
     Dates: start: 20170114
  5. TUMS [Concomitant]
     Active Substance: CALCIUM CARBONATE
  6. SODIUM BICARBONATE. [Concomitant]
     Active Substance: SODIUM BICARBONATE
  7. FUROSEMIDE. [Concomitant]
     Active Substance: FUROSEMIDE

REACTIONS (1)
  - Renal transplant [Unknown]

NARRATIVE: CASE EVENT DATE: 2017
